FAERS Safety Report 10041732 (Version 1)
Quarter: 2014Q1

REPORT INFORMATION
  Report Type: Spontaneous
  Country: US (occurrence: None)
  Receive Date: 20140325
  Receipt Date: 20140325
  Transmission Date: 20141002
  Serious: Yes (Hospitalization, Other)
  Sender: FDA-Public Use
  Company Number: 2014-US-003238

PATIENT
  Age: 39 Year
  Sex: Female
  Weight: 89.8 kg

DRUGS (6)
  1. XYREM [Suspect]
     Indication: NARCOLEPSY
     Route: 048
     Dates: start: 201011, end: 2010
  2. XYREM [Suspect]
     Indication: SOMNOLENCE
     Route: 048
     Dates: start: 201011, end: 2010
  3. XYREM [Suspect]
     Route: 048
     Dates: start: 201011, end: 2010
  4. METFORMIN (METFORMIN) [Concomitant]
  5. PRENATAL VITAMINS (ASCORBIC ACID, CALCIUM PANTOTHENATECYANOCOBALAMIN, ERGOCALCIFEROL, NICOTINAMIDE, PYRIDOXINE HYDROCHLORIDE, RETINOL PALMITATE, RIBOFLAVIN, THIAMINE MONONITRATE) [Concomitant]
  6. IRON (IRON) [Concomitant]

REACTIONS (5)
  - Preterm premature rupture of membranes [None]
  - Premature delivery [None]
  - Twin pregnancy [None]
  - Maternal drugs affecting foetus [None]
  - Caesarean section [None]
